FAERS Safety Report 11670875 (Version 1)
Quarter: 2015Q4

REPORT INFORMATION
  Report Type: Spontaneous
  Country: FR (occurrence: FR)
  Receive Date: 20151028
  Receipt Date: 20151028
  Transmission Date: 20160304
  Serious: Yes (Other)
  Sender: FDA-Public Use
  Company Number: FR-BEH-2015054897

PATIENT
  Age: 5 Year
  Sex: Female

DRUGS (3)
  1. INTRAVENOUS IMMUNOGLOBULINS [Suspect]
     Active Substance: HUMAN IMMUNOGLOBULIN G
     Indication: RASMUSSEN ENCEPHALITIS
  2. CORTICOSTEROIDS [Suspect]
     Active Substance: CORTICOSTEROID NOS
     Indication: RASMUSSEN ENCEPHALITIS
  3. ANTIEPILEPTICS [Suspect]
     Active Substance: UNSPECIFIED INGREDIENT
     Indication: RASMUSSEN ENCEPHALITIS

REACTIONS (5)
  - Cognitive disorder [Recovering/Resolving]
  - Drug ineffective for unapproved indication [Unknown]
  - Aphasia [Recovering/Resolving]
  - Status epilepticus [Recovered/Resolved]
  - Hemiplegia [Not Recovered/Not Resolved]
